FAERS Safety Report 9398311 (Version 2)
Quarter: 2013Q4

REPORT INFORMATION
  Report Type: Spontaneous
  Country: US (occurrence: US)
  Receive Date: 20130712
  Receipt Date: 20131105
  Transmission Date: 20140711
  Serious: Yes (Other)
  Sender: FDA-Public Use
  Company Number: US-TEVA-418235USA

PATIENT
  Age: 30 Year
  Sex: Female
  Weight: 69.92 kg

DRUGS (4)
  1. PARAGARD 380A [Suspect]
     Indication: CONTRACEPTION
     Route: 015
     Dates: start: 20130605, end: 20130715
  2. PARAGARD 380A [Suspect]
     Route: 015
     Dates: start: 20130715
  3. LEXAPRO [Concomitant]
  4. DEPLAN [Concomitant]

REACTIONS (4)
  - Vaginal haemorrhage [Unknown]
  - Device dislocation [Recovered/Resolved]
  - Pain [Unknown]
  - Metrorrhagia [Recovered/Resolved]
